FAERS Safety Report 5317040-0 (Version None)
Quarter: 2007Q2

REPORT INFORMATION
  Report Type: 
  Country: None (occurrence: None)
  Receive Date: 20070504
  Receipt Date: 20070424
  Transmission Date: 20071010
  Serious: Yes (Hospitalization, Disabling)
  Sender: FDA-Public Use
  Company Number: JP-ROCHE-494570

PATIENT
  Age: 59 Year
  Sex: Male

DRUGS (8)
  1. TICLOPIDINE HCL [Suspect]
     Indication: ANTIPLATELET THERAPY
     Route: 048
     Dates: start: 20061206, end: 20070119
  2. LIPITOR [Concomitant]
  3. TAKEPRON [Concomitant]
  4. ITOROL [Concomitant]
  5. FERROMIA [Concomitant]
  6. LASIX [Concomitant]
  7. ASPIRIN [Concomitant]
  8. ALLOPURINOL [Concomitant]

REACTIONS (4)
  - INFLAMMATION [None]
  - LEUKOPENIA [None]
  - LUNG ABSCESS [None]
  - PYREXIA [None]
